FAERS Safety Report 5534592-6 (Version None)
Quarter: 2007Q4

REPORT INFORMATION
  Report Type: 
  Country: None (occurrence: None)
  Receive Date: 20071204
  Receipt Date: 20071204
  Transmission Date: 20080405
  Serious: Yes (Other)
  Sender: FDA-Public Use
  Company Number: None

PATIENT
  Age: 64 Year
  Sex: Male

DRUGS (2)
  1. FENTANYL [Suspect]
     Indication: RESPIRATORY THERAPY
     Dosage: CONTINUOUS IV DRIP
     Route: 041
     Dates: start: 20071111, end: 20071119
  2. IV BAG EMPTY BAXTER [Suspect]

REACTIONS (2)
  - BACTERIAL INFECTION [None]
  - CULTURE POSITIVE [None]
